FAERS Safety Report 9053684 (Version 4)
Quarter: 2013Q4

REPORT INFORMATION
  Report Type: Report from Study
  Country: CA (occurrence: CA)
  Receive Date: 20130208
  Receipt Date: 20131003
  Transmission Date: 20140711
  Serious: Yes (Other)
  Sender: FDA-Public Use
  Company Number: PHHY2013CA012245

PATIENT
  Age: 38 Year
  Sex: Male

DRUGS (5)
  1. TASIGNA [Suspect]
     Indication: CHRONIC MYELOID LEUKAEMIA
     Dosage: 300 MG, BID
     Route: 048
     Dates: start: 20121226
  2. REACTINE [Suspect]
     Dosage: UNK UKN, UNK
     Dates: start: 201304
  3. HYDROXYUREA [Suspect]
  4. VENTOLIN [Concomitant]
     Dosage: UNK UKN, PRN
  5. EPIPEN [Concomitant]
     Dosage: UNK UKN, PRN

REACTIONS (8)
  - Electrocardiogram QT prolonged [Recovering/Resolving]
  - Hepatic enzyme increased [Unknown]
  - White blood cell count decreased [Recovered/Resolved]
  - Haemoglobin decreased [Unknown]
  - Dry skin [Unknown]
  - Acne [Not Recovered/Not Resolved]
  - Arthralgia [Not Recovered/Not Resolved]
  - Blood phosphorus decreased [Unknown]
